FAERS Safety Report 8333712-8 (Version None)
Quarter: 2012Q2

REPORT INFORMATION
  Report Type: 
  Country: None (occurrence: None)
  Receive Date: 20120503
  Receipt Date: 20120430
  Transmission Date: 20120825
  Serious: Yes (Death)
  Sender: FDA-Public Use
  Company Number: US-B.I. PHARMACEUTICALS,INC./RIDGEFIELD-2012-BP-06969BP

PATIENT
  Age: 68 Year
  Sex: Male
  Weight: 94.5 kg

DRUGS (10)
  1. DIOVAN [Concomitant]
     Indication: HYPERTENSION
     Dosage: 320 MG
  2. METOPROLOL TARTRATE [Concomitant]
     Indication: HYPERTENSION
     Dosage: 50 MG
  3. ASPIRIN [Suspect]
     Indication: ATRIAL FIBRILLATION
  4. PRADAXA [Suspect]
     Indication: ATRIAL FIBRILLATION
     Dosage: 300 MG
     Route: 048
     Dates: start: 20110829, end: 20111228
  5. PROPAFENONE HYDROCHLORIDE [Concomitant]
     Indication: ATRIAL FIBRILLATION
     Dosage: 225 MG
  6. M.V.I. [Concomitant]
  7. GLUMET [Concomitant]
     Indication: DIABETES MELLITUS
     Dosage: 1500 MG
  8. TEKTURNA [Concomitant]
     Indication: HYPERTENSION
     Dosage: 150 MG
  9. GLIMEPIRIDE [Concomitant]
     Dosage: 4 MG
  10. ASPIRIN [Suspect]
     Indication: CORONARY ARTERY DISEASE
     Dosage: 162 MG

REACTIONS (1)
  - CEREBRAL HAEMORRHAGE [None]
